FAERS Safety Report 14448972 (Version 6)
Quarter: 2018Q4

REPORT INFORMATION
  Report Type: Spontaneous
  Country: US (occurrence: US)
  Receive Date: 20180126
  Receipt Date: 20181220
  Transmission Date: 20190204
  Serious: Yes (Hospitalization, Other)
  Sender: FDA-Public Use
  Company Number: US-ACTELION-A-NJ2018-166579

PATIENT
  Age: 51 Year
  Sex: Female
  Weight: 113.38 kg

DRUGS (2)
  1. ADCIRCA [Concomitant]
     Active Substance: TADALAFIL
  2. OPSUMIT [Suspect]
     Active Substance: MACITENTAN
     Indication: PULMONARY ARTERIAL HYPERTENSION
     Dosage: 10 MG, QD
     Route: 048
     Dates: start: 20171005

REACTIONS (22)
  - Palpitations [Recovering/Resolving]
  - Dizziness [Unknown]
  - Oedema [Unknown]
  - Cardiac failure congestive [Recovered/Resolved]
  - Fatigue [Recovered/Resolved with Sequelae]
  - Anaemia [Unknown]
  - Weight increased [Recovering/Resolving]
  - Loss of personal independence in daily activities [Recovered/Resolved with Sequelae]
  - Dyspnoea [Recovering/Resolving]
  - Atrial tachycardia [Recovered/Resolved]
  - Oedema peripheral [Recovered/Resolved]
  - Menorrhagia [Not Recovered/Not Resolved]
  - Brain natriuretic peptide increased [Unknown]
  - Therapeutic product ineffective [Unknown]
  - Condition aggravated [Unknown]
  - Haematocrit decreased [Unknown]
  - Oxygen saturation decreased [Recovering/Resolving]
  - Haemoglobin decreased [Unknown]
  - Polymenorrhoea [Not Recovered/Not Resolved]
  - Arrhythmia [Recovered/Resolved]
  - Atrial flutter [Recovered/Resolved]
  - Peripheral swelling [Recovering/Resolving]

NARRATIVE: CASE EVENT DATE: 20171016
